FAERS Safety Report 5176255-5 (Version None)
Quarter: 2006Q4

REPORT INFORMATION
  Report Type: 
  Country: None (occurrence: None)
  Receive Date: 20061215
  Receipt Date: 20060502
  Transmission Date: 20070319
  Serious: Yes (Hospitalization)
  Sender: FDA-Public Use
  Company Number: NO-AMGEN-UK178465

PATIENT
  Age: 40 Year
  Sex: Female

DRUGS (4)
  1. NEULASTA [Suspect]
     Indication: CHEMOTHERAPY
     Route: 065
     Dates: start: 20060411
  2. FLUOROURACIL [Concomitant]
     Route: 065
     Dates: start: 20060410
  3. EPIRUBICIN [Concomitant]
     Route: 065
     Dates: start: 20060410
  4. CYCLOPHOSPHAMIDE [Concomitant]
     Route: 065
     Dates: start: 20060410

REACTIONS (5)
  - BREAST PAIN [None]
  - MYALGIA [None]
  - NECK PAIN [None]
  - NEURALGIA [None]
  - PAIN OF SKIN [None]
